FAERS Safety Report 24202329 (Version 3)
Quarter: 2024Q3

REPORT INFORMATION
  Report Type: Report from Study
  Country: IL (occurrence: IL)
  Receive Date: 20240812
  Receipt Date: 20240828
  Transmission Date: 20241017
  Serious: Yes (Other)
  Sender: JOHNSON AND JOHNSON
  Company Number: IL-JNJFOC-20220601367

PATIENT
  Age: 44 Year
  Sex: Female

DRUGS (4)
  1. ESKETAMINE [Suspect]
     Active Substance: ESKETAMINE
     Indication: Depression
     Dosage: 56 MG (2 DEVICES)
     Dates: start: 20220512, end: 20220512
  2. ESKETAMINE [Suspect]
     Active Substance: ESKETAMINE
     Dosage: 84 MG (3 DEVICES), ADDITIONAL THERAPY DATES: 19-MAY-2022 AND 22-MAY-2022,
     Dates: start: 20220515, end: 20220526
  3. ESKETAMINE [Suspect]
     Active Substance: ESKETAMINE
     Dosage: 56 MG (2 DEVICES)
     Dates: start: 20220529, end: 20220602
  4. ESKETAMINE [Suspect]
     Active Substance: ESKETAMINE
     Dosage: 84 MG (3 DEVICES), ADDITIONAL THERAPY DATES: 12-JUN-2022, 16-JUN-2022, 23-JUN-2022, 30-JUN-2022, 07-
     Dates: start: 20220609, end: 20231130

REACTIONS (11)
  - Suicidal ideation [Recovered/Resolved]
  - Decreased appetite [Recovered/Resolved]
  - Anhedonia [Recovered/Resolved]
  - Back pain [Recovered/Resolved]
  - Fatigue [Recovered/Resolved]
  - Anxiety [Recovered/Resolved with Sequelae]
  - Insomnia [Recovered/Resolved]
  - Depressed mood [Recovered/Resolved with Sequelae]
  - Disturbance in attention [Recovered/Resolved]
  - Crying [Recovered/Resolved]
  - Nervousness [Recovered/Resolved]

NARRATIVE: CASE EVENT DATE: 20220515
